FAERS Safety Report 23096706 (Version 3)
Quarter: 2023Q4

REPORT INFORMATION
  Report Type: Spontaneous
  Country: JP (occurrence: JP)
  Receive Date: 20231023
  Receipt Date: 20231128
  Transmission Date: 20240110
  Serious: Yes (Other)
  Sender: FDA-Public Use
  Company Number: JP-AMGEN-JPNSP2023185080

PATIENT
  Age: 28 Year
  Sex: Male

DRUGS (1)
  1. BLINCYTO [Suspect]
     Active Substance: BLINATUMOMAB
     Indication: Acute lymphocytic leukaemia
     Dosage: UNK, (DRIP INFUSION)
     Route: 042

REACTIONS (6)
  - Hydrocephalus [Unknown]
  - Immune effector cell-associated neurotoxicity syndrome [Unknown]
  - Aqueductal stenosis [Unknown]
  - Cytokine release syndrome [Unknown]
  - Hypophosphataemia [Unknown]
  - Depressed level of consciousness [Unknown]
